FAERS Safety Report 4703106-2 (Version None)
Quarter: 2005Q2

REPORT INFORMATION
  Report Type: 
  Country: None (occurrence: None)
  Receive Date: 20050629
  Receipt Date: 20050623
  Transmission Date: 20051028
  Serious: Yes (Hospitalization)
  Sender: FDA-Public Use
  Company Number: 170

PATIENT
  Age: 71 Year
  Sex: Male

DRUGS (3)
  1. MELPHALAN [Suspect]
     Indication: MULTIPLE MYELOMA
     Dosage: 280MG SINGLE DOSE
     Route: 042
     Dates: start: 20050403
  2. THALIDOMIDE [Suspect]
     Indication: MULTIPLE MYELOMA
     Dosage: 100MG PER DAY
     Route: 048
     Dates: start: 20050223, end: 20050325
  3. FLOMAX [Suspect]
     Indication: MULTIPLE MYELOMA
     Route: 048
     Dates: end: 20050401

REACTIONS (17)
  - ABDOMINAL PAIN [None]
  - BLOOD CREATININE INCREASED [None]
  - BLOOD LACTATE DEHYDROGENASE INCREASED [None]
  - BRAIN NATRIURETIC PEPTIDE INCREASED [None]
  - BRONCHITIS [None]
  - CARDIAC PACEMAKER MALFUNCTION [None]
  - CLOSTRIDIUM COLITIS [None]
  - DIARRHOEA [None]
  - DYSPNOEA [None]
  - FLUID OVERLOAD [None]
  - HYPOXIA [None]
  - ILL-DEFINED DISORDER [None]
  - ORTHOSTATIC HYPOTENSION [None]
  - PNEUMONIA [None]
  - PULMONARY EMBOLISM [None]
  - PYREXIA [None]
  - RENAL IMPAIRMENT [None]
